FAERS Safety Report 8738784 (Version 3)
Quarter: 2012Q4

REPORT INFORMATION
  Report Type: Spontaneous
  Country: US (occurrence: None)
  Receive Date: 20120805
  Receipt Date: 20120910
  Transmission Date: 20130627
  Serious: Yes (Other)
  Sender: FDA-Public Use
  Company Number: ADR-2012-01408

PATIENT
  Sex: Female

DRUGS (2)
  1. BACLOFEN [Suspect]
  2. BACLOFEN [Suspect]

REACTIONS (3)
  - Arthralgia [None]
  - Weight bearing difficulty [None]
  - Arthralgia [None]
